FAERS Safety Report 14458678 (Version 2)
Quarter: 2019Q1

REPORT INFORMATION
  Report Type: Report from Study
  Country: US (occurrence: US)
  Receive Date: 20180130
  Receipt Date: 20190206
  Transmission Date: 20190417
  Serious: Yes (Death, Other)
  Sender: FDA-Public Use
  Company Number: US-PFIZER INC-2018030600

PATIENT
  Age: 32 Year
  Sex: Male
  Weight: 63.2 kg

DRUGS (7)
  1. METHOTREXATE SODIUM. [Suspect]
     Active Substance: METHOTREXATE SODIUM
     Indication: ACUTE LYMPHOCYTIC LEUKAEMIA
     Dosage: UNK
     Route: 037
     Dates: start: 20171213
  2. INOTUZUMAB OZOGAMICIN [Suspect]
     Active Substance: INOTUZUMAB OZOGAMICIN
     Indication: ACUTE LYMPHOCYTIC LEUKAEMIA
     Dosage: 0.8 MG, WEEKLY
     Route: 042
     Dates: start: 20170809, end: 20171128
  3. VINCRISTINE SULFATE. [Suspect]
     Active Substance: VINCRISTINE SULFATE
     Dosage: UNK
     Dates: start: 20171219
  4. PEGASPARGASE [Suspect]
     Active Substance: PEGASPARGASE
     Indication: ACUTE LYMPHOCYTIC LEUKAEMIA
     Dosage: UNK
     Dates: start: 20171208
  5. DOXORUBICIN HCL [Suspect]
     Active Substance: DOXORUBICIN HYDROCHLORIDE
     Indication: ACUTE LYMPHOCYTIC LEUKAEMIA
     Dosage: UNK
     Dates: start: 20171211, end: 20171212
  6. VINCRISTINE SULFATE. [Suspect]
     Active Substance: VINCRISTINE SULFATE
     Indication: ACUTE LYMPHOCYTIC LEUKAEMIA
     Dosage: UNK
     Dates: start: 20171211
  7. CYTOXAN [Suspect]
     Active Substance: CYCLOPHOSPHAMIDE
     Indication: ACUTE LYMPHOCYTIC LEUKAEMIA
     Dosage: UNK
     Dates: start: 20171208, end: 20171211

REACTIONS (17)
  - Neoplasm progression [Fatal]
  - Clostridium difficile colitis [Unknown]
  - Insomnia [Unknown]
  - Febrile neutropenia [Unknown]
  - Vitamin K deficiency [Unknown]
  - Rash [Unknown]
  - Genital rash [Unknown]
  - Sepsis [Unknown]
  - Venoocclusive liver disease [Fatal]
  - Encephalopathy [Unknown]
  - Left ventricular dysfunction [Unknown]
  - Constipation [Unknown]
  - Pleural effusion [Unknown]
  - Acute kidney injury [Unknown]
  - Intra-abdominal haemorrhage [Unknown]
  - Hyperthyroidism [Unknown]
  - Hypovolaemia [Unknown]

NARRATIVE: CASE EVENT DATE: 20171201
